FAERS Safety Report 9165487 (Version 1)
Quarter: 2013Q1

REPORT INFORMATION
  Report Type: Spontaneous
  Country: DE (occurrence: DE)
  Receive Date: 20130315
  Receipt Date: 20130315
  Transmission Date: 20140127
  Serious: Yes (Death, Other)
  Sender: FDA-Public Use
  Company Number: PHHY2013DE023607

PATIENT
  Age: 16 Year
  Sex: Female

DRUGS (6)
  1. OXCARBAZEPINE [Suspect]
     Dosage: UNK UKN, UNK
  2. VALPROIC ACID [Suspect]
  3. PHENOBARBITAL [Suspect]
  4. PHENYTOIN [Suspect]
  5. THIOPENTAL [Suspect]
  6. LEVETIRACETAM [Suspect]

REACTIONS (2)
  - Neurological decompensation [Fatal]
  - Convulsion [Unknown]
